FAERS Safety Report 9267887 (Version 2)
Quarter: 2013Q2

REPORT INFORMATION
  Report Type: Spontaneous
  Country: US (occurrence: US)
  Receive Date: 20130502
  Receipt Date: 20130606
  Transmission Date: 20140414
  Serious: Yes (Hospitalization)
  Sender: FDA-Public Use
  Company Number: US-ALEXION PHARMACEUTICALS INC.-A201300937

PATIENT
  Sex: Female

DRUGS (4)
  1. SOLIRIS 300MG [Suspect]
     Indication: PAROXYSMAL NOCTURNAL HAEMOGLOBINURIA
     Dosage: UNK
     Route: 042
  2. KEPPRA [Concomitant]
     Indication: POSTERIOR REVERSIBLE ENCEPHALOPATHY SYNDROME
     Dosage: UNK
  3. DIAMOX [Concomitant]
     Indication: INTRACRANIAL PRESSURE INCREASED
     Dosage: UNK
  4. FERROUS SULFATE [Concomitant]
     Dosage: UNK

REACTIONS (1)
  - Hidradenitis [Recovered/Resolved]
